FAERS Safety Report 7688014-X (Version None)
Quarter: 2011Q3

REPORT INFORMATION
  Report Type: 
  Country: None (occurrence: None)
  Receive Date: 20110817
  Receipt Date: 20110812
  Transmission Date: 20111222
  Serious: Yes (Other)
  Sender: FDA-Public Use
  Company Number: US-PFIZER INC-2011186275

PATIENT
  Sex: Female
  Weight: 54 kg

DRUGS (6)
  1. DILANTIN [Suspect]
     Indication: CONVULSION
     Dosage: 100 MG, 3X/DAY
     Route: 048
     Dates: start: 19760101, end: 19990101
  2. DILANTIN [Suspect]
     Dosage: 100 MG, 4X/DAY
     Route: 048
     Dates: start: 20070101
  3. DILANTIN [Suspect]
     Dosage: 100 MG, 3X/DAY
     Route: 048
  4. DILANTIN [Suspect]
     Dosage: 100 MG, 2X/DAY
     Route: 048
     Dates: start: 19990101, end: 19990101
  5. MYSOLINE [Concomitant]
     Indication: CONVULSION
     Dosage: 250 MG, 3X/DAY
  6. DILANTIN [Suspect]
     Dosage: 100 MG, 3X/DAY
     Route: 048
     Dates: start: 19990101, end: 20070101

REACTIONS (4)
  - OSTEOPOROSIS [None]
  - WEIGHT DECREASED [None]
  - BURNING SENSATION [None]
  - CONVULSION [None]
